FAERS Safety Report 19660566 (Version 1)
Quarter: 2021Q3

REPORT INFORMATION
  Report Type: Spontaneous
  Country: US (occurrence: US)
  Receive Date: 20210805
  Receipt Date: 20210805
  Transmission Date: 20211014
  Serious: Yes (Hospitalization)
  Sender: FDA-Public Use
  Company Number: None

PATIENT
  Age: 86 Year
  Sex: Female

DRUGS (12)
  1. PANTOPRAZOLE [Concomitant]
     Active Substance: PANTOPRAZOLE
     Dates: start: 20210214
  2. WARFARIN [Concomitant]
     Active Substance: WARFARIN
     Dates: start: 20210309
  3. TAMSULOSIN [Concomitant]
     Active Substance: TAMSULOSIN
     Dates: start: 20210422
  4. POT CHLORIDE [Concomitant]
     Active Substance: POTASSIUM CHLORIDE
     Dates: start: 20210429
  5. IPRATROPIUM [Concomitant]
     Active Substance: IPRATROPIUM
     Dates: start: 20210405
  6. BUMETANIDE. [Concomitant]
     Active Substance: BUMETANIDE
     Dates: start: 20201001
  7. CARVEDILOL. [Concomitant]
     Active Substance: CARVEDILOL
     Dates: start: 20201201
  8. LOSARTAN. [Concomitant]
     Active Substance: LOSARTAN
     Dates: start: 20201214
  9. TADALAFIL TAB [Suspect]
     Active Substance: TADALAFIL
     Indication: PULMONARY ARTERIAL HYPERTENSION
     Route: 048
     Dates: start: 20200820
  10. SUCRALFATE. [Concomitant]
     Active Substance: SUCRALFATE
     Dates: start: 20201231
  11. DESIPRAMINE [Concomitant]
     Active Substance: DESIPRAMINE
     Dates: start: 20210217
  12. GABAPENTIN. [Concomitant]
     Active Substance: GABAPENTIN
     Dates: start: 20200908

REACTIONS (3)
  - Fall [None]
  - Asthenia [None]
  - Mobility decreased [None]

NARRATIVE: CASE EVENT DATE: 20210630
